FAERS Safety Report 8144264-X (Version None)
Quarter: 2012Q1

REPORT INFORMATION
  Report Type: 
  Country: None (occurrence: None)
  Receive Date: 20120217
  Receipt Date: 20120208
  Transmission Date: 20120608
  Serious: Yes (Other)
  Sender: FDA-Public Use
  Company Number: JP-BAXTER-2011BH008799

PATIENT
  Age: 32 Year
  Sex: Male
  Weight: 56 kg

DRUGS (4)
  1. RECOMBINATE [Concomitant]
     Indication: FACTOR VIII DEFICIENCY
     Route: 042
  2. REBETOL [Concomitant]
     Indication: HEPATITIS C
     Route: 048
  3. ADVATE [Suspect]
     Indication: FACTOR VIII DEFICIENCY
     Route: 042
     Dates: start: 20070405
  4. PEGINTERFERON ALFA-2B [Concomitant]
     Indication: HEPATITIS C
     Route: 058

REACTIONS (2)
  - CONDITION AGGRAVATED [None]
  - FACTOR VIII INHIBITION [None]
